FAERS Safety Report 6555921-0 (Version None)
Quarter: 2010Q1

REPORT INFORMATION
  Report Type: 
  Country: None (occurrence: None)
  Receive Date: 20100128
  Receipt Date: 20100119
  Transmission Date: 20100710
  Serious: Yes (Other)
  Sender: FDA-Public Use
  Company Number: US-JNJFOC-20091007036

PATIENT
  Sex: Female
  Weight: 72.58 kg

DRUGS (6)
  1. DURAGESIC-100 [Suspect]
     Indication: BACK PAIN
     Route: 062
  2. DURAGESIC-100 [Suspect]
     Route: 062
  3. DURAGESIC-100 [Suspect]
     Indication: NECK PAIN
     Route: 062
  4. DURAGESIC-100 [Suspect]
     Route: 062
  5. ROBAXIN [Concomitant]
     Indication: PAIN
     Dosage: TWO TABS OF 750 MG
     Route: 048
  6. PERCOCET [Concomitant]
     Indication: PAIN
     Dosage: 10/325 MG
     Route: 048

REACTIONS (7)
  - BEDRIDDEN [None]
  - BIPOLAR DISORDER [None]
  - DRUG ADMINISTERED AT INAPPROPRIATE SITE [None]
  - DRUG INEFFECTIVE [None]
  - INCORRECT DRUG ADMINISTRATION DURATION [None]
  - MUSCLE TWITCHING [None]
  - WITHDRAWAL SYNDROME [None]
